FAERS Safety Report 4877381-8 (Version None)
Quarter: 2006Q1

REPORT INFORMATION
  Report Type: 
  Country: None (occurrence: None)
  Receive Date: 20060111
  Receipt Date: 20060104
  Transmission Date: 20060701
  Serious: Yes (Life-Threatening, Hospitalization, Disabling, Other)
  Sender: FDA-Public Use
  Company Number: US-JNJFOC-20051201815

PATIENT
  Sex: Female
  Weight: 46.27 kg

DRUGS (10)
  1. REMICADE [Suspect]
     Route: 042
  2. REMICADE [Suspect]
     Route: 042
  3. REMICADE [Suspect]
     Route: 042
  4. REMICADE [Suspect]
     Route: 042
  5. REMICADE [Suspect]
     Indication: RHEUMATOID ARTHRITIS
     Route: 042
  6. PROTONIX [Concomitant]
  7. SULCRAFATE [Concomitant]
  8. MULTIVIT [Concomitant]
  9. CALCIUM GLUCONATE [Concomitant]
  10. CELEBREX [Concomitant]

REACTIONS (16)
  - ADRENAL INSUFFICIENCY [None]
  - ASCITES [None]
  - BLOOD CREATININE INCREASED [None]
  - BLOOD POTASSIUM DECREASED [None]
  - BLOOD POTASSIUM INCREASED [None]
  - DUODENITIS [None]
  - HIATUS HERNIA [None]
  - INTESTINAL OBSTRUCTION [None]
  - MEMORY IMPAIRMENT [None]
  - OBSTRUCTIVE UROPATHY [None]
  - OESOPHAGITIS [None]
  - OVARIAN EPITHELIAL CANCER [None]
  - RENAL FAILURE [None]
  - RENAL TUBULAR ACIDOSIS [None]
  - THERAPEUTIC RESPONSE DECREASED [None]
  - WEIGHT DECREASED [None]
